FAERS Safety Report 18358163 (Version 1)
Quarter: 2020Q4

REPORT INFORMATION
  Report Type: Spontaneous
  Country: JP (occurrence: JP)
  Receive Date: 20201008
  Receipt Date: 20201008
  Transmission Date: 20210114
  Serious: Yes (Hospitalization)
  Sender: FDA-Public Use
  Company Number: JP-BIOGEN-2020BI00919667

PATIENT
  Age: 42 Year
  Sex: Female
  Weight: 69 kg

DRUGS (13)
  1. ONEALFA [Concomitant]
     Active Substance: ALFACALCIDOL
     Route: 048
  2. LASIX [Concomitant]
     Active Substance: FUROSEMIDE
     Indication: MITRAL VALVE REPAIR
     Route: 048
  3. LYRICA [Concomitant]
     Active Substance: PREGABALIN
     Indication: RELAPSING-REMITTING MULTIPLE SCLEROSIS
     Route: 050
  4. THYRADIN [Concomitant]
     Active Substance: LEVOTHYROXINE
     Indication: ENDOCRINE PROCEDURAL COMPLICATION
     Route: 048
  5. TERNELIN [Concomitant]
     Active Substance: TIZANIDINE
     Indication: RELAPSING-REMITTING MULTIPLE SCLEROSIS
     Route: 050
  6. RIVOTRIL [Concomitant]
     Active Substance: CLONAZEPAM
     Indication: RELAPSING-REMITTING MULTIPLE SCLEROSIS
     Route: 050
  7. SPIRONOLACTONE. [Concomitant]
     Active Substance: SPIRONOLACTONE
     Indication: MITRAL VALVE REPAIR
     Route: 048
  8. JUVELA [Concomitant]
     Active Substance: .ALPHA.-TOCOPHEROL\RETINOL
     Route: 048
  9. CRESTOR [Concomitant]
     Active Substance: ROSUVASTATIN CALCIUM
     Indication: DYSLIPIDAEMIA
     Route: 048
  10. RIZE [Concomitant]
     Active Substance: CLOTIAZEPAM
     Route: 048
  11. CABPIRIN [Concomitant]
     Indication: MITRAL VALVE REPAIR
     Route: 048
  12. TYSABRI [Suspect]
     Active Substance: NATALIZUMAB
     Route: 050
  13. TYSABRI [Suspect]
     Active Substance: NATALIZUMAB
     Indication: RELAPSING-REMITTING MULTIPLE SCLEROSIS
     Route: 050
     Dates: start: 20150416

REACTIONS (1)
  - Thyroid adenoma [Recovered/Resolved]

NARRATIVE: CASE EVENT DATE: 201902
